FAERS Safety Report 6529710-7 (Version None)
Quarter: 2010Q1

REPORT INFORMATION
  Report Type: 
  Country: None (occurrence: None)
  Receive Date: 20100107
  Receipt Date: 20100105
  Transmission Date: 20100710
  Serious: Yes (Life-Threatening, Other)
  Sender: FDA-Public Use
  Company Number: JP-ROXANE LABORATORIES, INC.-2010-RO-00005RO

PATIENT
  Age: 74 Year
  Sex: Female

DRUGS (7)
  1. DEXAMETHASONE [Suspect]
     Indication: PREMEDICATION
     Dosage: 20 MG
     Route: 042
     Dates: start: 20061201
  2. DEXAMETHASONE [Suspect]
     Dosage: 8 MG
     Route: 042
  3. PACLITAXEL [Suspect]
     Indication: BREAST CANCER
     Dates: start: 20061201
  4. RESTAMIN [Suspect]
     Indication: PREMEDICATION
     Route: 048
     Dates: start: 20061201
  5. ZANTAC [Suspect]
     Dosage: 50 MG
     Route: 042
     Dates: start: 20061201
  6. RINGER'S [Concomitant]
     Indication: ANAPHYLACTIC REACTION
  7. OXYGEN [Concomitant]
     Indication: ANAPHYLACTIC REACTION

REACTIONS (3)
  - ALOPECIA [None]
  - ANAPHYLACTIC REACTION [None]
  - HYPOTENSION [None]
